FAERS Safety Report 12354941 (Version 1)
Quarter: 2016Q2

REPORT INFORMATION
  Report Type: Spontaneous
  Country: US (occurrence: None)
  Receive Date: 20160510
  Receipt Date: 20160510
  Transmission Date: 20160815
  Serious: Yes (Other)
  Sender: FDA-Public Use
  Company Number: None

PATIENT
  Age: 51 Year
  Sex: Female
  Weight: 90.72 kg

DRUGS (1)
  1. BIOTE PELLETS BIOTE [Suspect]
     Active Substance: ESTROGENS\TESTOSTERONE
     Indication: MENOPAUSE

REACTIONS (4)
  - Blood testosterone increased [None]
  - Alopecia [None]
  - Panic reaction [None]
  - Psychomotor hyperactivity [None]
